FAERS Safety Report 9374528 (Version 1)
Quarter: 2013Q2

REPORT INFORMATION
  Report Type: Spontaneous
  Country: US (occurrence: US)
  Receive Date: 20130628
  Receipt Date: 20130628
  Transmission Date: 20140414
  Serious: Yes (Disabling, Other)
  Sender: FDA-Public Use
  Company Number: US-BAYER-2013-077966

PATIENT
  Age: 68 Year
  Sex: Female

DRUGS (2)
  1. CIPROFLOXACIN [Suspect]
  2. PREDNISONE [Suspect]

REACTIONS (5)
  - Tendon rupture [None]
  - Skin ulcer [Recovering/Resolving]
  - Scleroderma [None]
  - Pain in extremity [None]
  - Pseudomonas test positive [Recovering/Resolving]
